FAERS Safety Report 12963972 (Version 1)
Quarter: 2016Q4

REPORT INFORMATION
  Report Type: Report from Study
  Country: CO (occurrence: CO)
  Receive Date: 20161122
  Receipt Date: 20161122
  Transmission Date: 20170207
  Serious: Yes (Hospitalization)
  Sender: FDA-Public Use
  Company Number: PHHY2015CO064648

PATIENT
  Age: 48 Year
  Sex: Female
  Weight: 50 kg

DRUGS (2)
  1. SANDOSTATIN LAR DEPOT [Suspect]
     Active Substance: OCTREOTIDE ACETATE
     Indication: NEUROENDOCRINE TUMOUR
     Dosage: 2 DF QMO
     Route: 030
     Dates: start: 20130626
  2. AFINITOR [Suspect]
     Active Substance: EVEROLIMUS
     Indication: NEUROENDOCRINE TUMOUR
     Dosage: 10 MG, QD
     Route: 048
     Dates: start: 20130701

REACTIONS (7)
  - Ear swelling [Unknown]
  - Incorrect dose administered [Unknown]
  - Malaise [Unknown]
  - Eye swelling [Unknown]
  - Dry skin [Recovering/Resolving]
  - Stomatitis [Unknown]
  - Aphthous ulcer [Unknown]

NARRATIVE: CASE EVENT DATE: 20130626
